FAERS Safety Report 9222318 (Version 2)
Quarter: 2013Q2

REPORT INFORMATION
  Report Type: Spontaneous
  Country: US (occurrence: US)
  Receive Date: 20130410
  Receipt Date: 20130607
  Transmission Date: 20140414
  Serious: Yes (Hospitalization)
  Sender: FDA-Public Use
  Company Number: US-PFIZER INC-2013112591

PATIENT
  Age: 88 Year
  Sex: Female
  Weight: 59.41 kg

DRUGS (7)
  1. ZOLOFT [Suspect]
     Indication: DEPRESSION
     Dosage: 100 MG, 1X/DAY
     Route: 048
  2. NEURONTIN [Suspect]
     Indication: NEURALGIA
     Dosage: 300 MG (BY CUTTING 600MG TABLET IN HALF), 1X/DAY
     Route: 048
  3. SYNTHROID [Concomitant]
     Indication: THYROID DISORDER
     Dosage: UNK
  4. VYTORIN [Concomitant]
     Indication: BLOOD CHOLESTEROL INCREASED
     Dosage: [EZETIMIBE 10 MG] / [SIMVASTATIN 10 MG], UNK
  5. ATENOLOL [Concomitant]
     Dosage: UNK, 1X/DAY
  6. HYDROCHLOROTHIAZIDE [Concomitant]
     Dosage: 50 MG, UNK
  7. PRILOSEC [Concomitant]
     Indication: GASTRIC DISORDER
     Dosage: UNK, 1X/DAY

REACTIONS (8)
  - Cardiac disorder [Unknown]
  - Anaemia [Unknown]
  - Vitamin B12 decreased [Unknown]
  - Blood iron decreased [Unknown]
  - Expired drug administered [Unknown]
  - Nervousness [Unknown]
  - Hypoaesthesia [Unknown]
  - Drug effect incomplete [Unknown]
